FAERS Safety Report 17994637 (Version 2)
Quarter: 2020Q3

REPORT INFORMATION
  Report Type: Report from Study
  Country: US (occurrence: US)
  Receive Date: 20200708
  Receipt Date: 20200728
  Transmission Date: 20201103
  Serious: Yes (Other)
  Sender: FDA-Public Use
  Company Number: US-GLAXOSMITHKLINE-US2020AMR068592

PATIENT
  Age: 73 Year
  Sex: Female

DRUGS (3)
  1. NIRAPARIB [Suspect]
     Active Substance: NIRAPARIB
     Dosage: 200 MG, QD
  2. NIRAPARIB [Suspect]
     Active Substance: NIRAPARIB
     Indication: OVARIAN CANCER
     Dosage: 200 MG
     Dates: start: 201911
  3. NIRAPARIB [Suspect]
     Active Substance: NIRAPARIB
     Dosage: 200 MG, DAILY
     Dates: start: 20200331

REACTIONS (11)
  - Malignant neoplasm progression [Unknown]
  - Soft tissue infection [Unknown]
  - Tooth infection [Unknown]
  - Therapy cessation [Unknown]
  - Product dose omission issue [Unknown]
  - Nausea [Unknown]
  - Off label use [Unknown]
  - Swelling face [Unknown]
  - Memory impairment [Unknown]
  - Cough [Recovered/Resolved]
  - Blood pressure increased [Recovered/Resolved]

NARRATIVE: CASE EVENT DATE: 20200627
